FAERS Safety Report 25115589 (Version 3)
Quarter: 2025Q2

REPORT INFORMATION
  Report Type: Spontaneous
  Country: JP (occurrence: JP)
  Receive Date: 20250325
  Receipt Date: 20250409
  Transmission Date: 20250716
  Serious: Yes (Hospitalization)
  Sender: GLAXOSMITHKLINE
  Company Number: JP-GSK-JP2025JPN032432

PATIENT

DRUGS (1)
  1. DAPRODUSTAT [Suspect]
     Active Substance: DAPRODUSTAT
     Indication: Nephrogenic anaemia
     Dosage: 12 MG, QD
     Route: 048

REACTIONS (2)
  - Dyspnoea [Recovered/Resolved]
  - Hypervolaemia [Unknown]

NARRATIVE: CASE EVENT DATE: 20250310
